FAERS Safety Report 10515968 (Version 3)
Quarter: 2014Q4

REPORT INFORMATION
  Report Type: Spontaneous
  Country: QA (occurrence: QA)
  Receive Date: 20141014
  Receipt Date: 20141029
  Transmission Date: 20150528
  Serious: Yes (Hospitalization, Other)
  Sender: FDA-Public Use
  Company Number: QA-RANBAXY-2014RR-86324

PATIENT
  Age: 25 Year
  Sex: Male

DRUGS (4)
  1. IBUPROFEN. [Concomitant]
     Active Substance: IBUPROFEN
     Indication: OROPHARYNGEAL PAIN
     Dosage: UNK
     Route: 065
  2. AMOXICILLIN AND CLAVULANATE POTASSIUM [Suspect]
     Active Substance: AMOXICILLIN\CLAVULANATE POTASSIUM
     Indication: OROPHARYNGEAL PAIN
     Dosage: UNK, SINGLE
     Route: 065
  3. AMOXICILLIN AND CLAVULANATE POTASSIUM [Suspect]
     Active Substance: AMOXICILLIN\CLAVULANATE POTASSIUM
     Indication: PHARYNGITIS
     Dosage: UNK
     Route: 048
  4. AUGMENTIN [Suspect]
     Active Substance: AMOXICILLIN\CLAVULANATE POTASSIUM
     Indication: ALLERGY TEST
     Dosage: UNK
     Route: 048

REACTIONS (1)
  - Anaphylactic reaction [Recovering/Resolving]
